FAERS Safety Report 8486567-5 (Version None)
Quarter: 2012Q3

REPORT INFORMATION
  Report Type: 
  Country: None (occurrence: None)
  Receive Date: 20120703
  Receipt Date: 20120626
  Transmission Date: 20120928
  Serious: Yes (Hospitalization, Other)
  Sender: FDA-Public Use
  Company Number: DK-ABBOTT-12P-044-0946454-00

PATIENT
  Age: 3 Year
  Sex: Female
  Weight: 15 kg

DRUGS (3)
  1. VALPROIC ACID SYRUP [Suspect]
     Indication: EPILEPSY
     Dosage: 6,000 MG ONCE
     Route: 048
  2. VALPROIC ACID SYRUP [Suspect]
     Dosage: 100 + 150 MG PER DAY
     Route: 048
  3. VALPROIC ACID SYRUP [Suspect]

REACTIONS (5)
  - ACCIDENTAL EXPOSURE [None]
  - TOXICITY TO VARIOUS AGENTS [None]
  - BLOOD LACTIC ACID INCREASED [None]
  - OVERDOSE [None]
  - AMMONIA INCREASED [None]
